FAERS Safety Report 4352983-6 (Version None)
Quarter: 2004Q2

REPORT INFORMATION
  Report Type: 
  Country: None (occurrence: None)
  Receive Date: 20040430
  Receipt Date: 20040123
  Transmission Date: 20050107
  Serious: No
  Sender: FDA-Public Use
  Company Number: 204349

PATIENT
  Age: 36 Year
  Sex: Female
  Weight: 104 kg

DRUGS (8)
  1. XOLAIR [Suspect]
     Indication: ASTHMA
     Dosage: 300 MG, Q4W, SUBCUTANEOUS
     Route: 058
     Dates: start: 20031107, end: 20040114
  2. FLONASE [Concomitant]
  3. ADVAIR (FLUTICASONE PROPIONATE, SALEMETEROL XINAFOATE) [Concomitant]
  4. ALBUTEROL (ALBUTEROL SULFATE, ALBUTEROL) [Concomitant]
  5. COMBIVENT (ALBUTEROL, ALBUTEROL SULFATE, IPRATROPIUM BROMIDE) [Concomitant]
  6. NEBULIZER (UNK INGREDIENTS) (RESPIRATORY TREATMENTS AND DEVICES) [Concomitant]
  7. XOPENEX [Concomitant]
  8. SINGULAIR [Concomitant]

REACTIONS (5)
  - CHEST DISCOMFORT [None]
  - DYSPHAGIA [None]
  - DYSPNOEA [None]
  - HEADACHE [None]
  - NAUSEA [None]
